FAERS Safety Report 11421381 (Version 2)
Quarter: 2015Q3

REPORT INFORMATION
  Report Type: Spontaneous
  Country: US (occurrence: US)
  Receive Date: 20150826
  Receipt Date: 20150918
  Transmission Date: 20151125
  Serious: Yes (Hospitalization, Other)
  Sender: FDA-Public Use
  Company Number: US-GLAXOSMITHKLINE-US2015GSK121886

PATIENT
  Age: 81 Year
  Sex: Female

DRUGS (2)
  1. BECONASE AQ [Suspect]
     Active Substance: BECLOMETHASONE DIPROPIONATE MONOHYDRATE
     Indication: ASTHMA
     Dosage: UNK, U
     Route: 065
     Dates: start: 1996
  2. ADVAIR DISKUS [Suspect]
     Active Substance: FLUTICASONE PROPIONATE\SALMETEROL XINAFOATE
     Indication: ASTHMA
     Dosage: UNK, U
     Route: 065
     Dates: start: 1996

REACTIONS (9)
  - Hospitalisation [Unknown]
  - Product use issue [Unknown]
  - Cellulitis [Unknown]
  - Balance disorder [Unknown]
  - Knee arthroplasty [Unknown]
  - Fall [Unknown]
  - Pneumonia [Unknown]
  - Bronchitis [Unknown]
  - Rehabilitation therapy [Unknown]

NARRATIVE: CASE EVENT DATE: 1996
